FAERS Safety Report 15203624 (Version 1)
Quarter: 2018Q4

REPORT INFORMATION
  Report Type: Spontaneous
  Country: ES (occurrence: ES)
  Receive Date: 20180726
  Receipt Date: 20180726
  Transmission Date: 20190204
  Serious: Yes (Other)
  Sender: FDA-Public Use
  Company Number: ES-TEVA-2018-ES-930515

PATIENT
  Age: 47 Year
  Sex: Male
  Weight: 61 kg

DRUGS (3)
  1. TACROLIMUS CINFA 5 MG CAPSULAS DURAS EFG, 100 C?PSULAS [Suspect]
     Active Substance: TACROLIMUS
     Indication: RENAL TRANSPLANT
     Dosage: 5 MILLIGRAM DAILY; || DOSIS UNIDAD FRECUENCIA: 5 MG-MILIGRAMOS || UNIDAD DE FRECUENCIA: 1 D?A
     Route: 048
     Dates: start: 20160805
  2. PREDNISONA [Suspect]
     Active Substance: PREDNISONE
     Indication: RENAL TRANSPLANT
     Dosage: 5 MILLIGRAM DAILY; || DOSIS UNIDAD FRECUENCIA: 5 MG-MILIGRAMOS || UNIDAD DE FRECUENCIA: 1 D?A
     Route: 048
     Dates: start: 20160805
  3. MYFORTIC [Suspect]
     Active Substance: MYCOPHENOLATE SODIUM
     Indication: RENAL TRANSPLANT
     Dosage: || DOSIS UNIDAD FRECUENCIA: 720 MG-MILIGRAMOS || DOSIS POR TOMA: 360 MG-MILIGRAMOS || N? TOMAS POR U
     Route: 048
     Dates: start: 20160805

REACTIONS (1)
  - Cytomegalovirus infection [Recovering/Resolving]

NARRATIVE: CASE EVENT DATE: 20170123
